FAERS Safety Report 5140496-3 (Version None)
Quarter: 2006Q4

REPORT INFORMATION
  Report Type: 
  Country: None (occurrence: None)
  Receive Date: 20061025
  Receipt Date: 20061013
  Transmission Date: 20070319
  Serious: Yes (Death)
  Sender: FDA-Public Use
  Company Number: 2006VX001900

PATIENT
  Age: 67 Year
  Sex: Male

DRUGS (1)
  1. INTERFERON ALFACON-1 (INTERFERON ALFACON-1) [Suspect]
     Indication: HEPATITIS C
     Dosage: 9 MIU; TIW; SC
     Route: 058
     Dates: start: 20060705, end: 20060801

REACTIONS (5)
  - ALCOHOL USE [None]
  - AORTIC DILATATION [None]
  - AORTIC DISSECTION [None]
  - ATRIAL FIBRILLATION [None]
  - CARDIAC ANEURYSM [None]
